FAERS Safety Report 6045308-1 (Version None)
Quarter: 2009Q1

REPORT INFORMATION
  Report Type: 
  Country: None (occurrence: None)
  Receive Date: 20090121
  Receipt Date: 20090112
  Transmission Date: 20090719
  Serious: Yes (Other)
  Sender: FDA-Public Use
  Company Number: PHEH2009US00710

PATIENT
  Age: 85 Year
  Sex: Female

DRUGS (5)
  1. DIOVAN [Suspect]
     Indication: HYPERTENSION
     Dosage: 160 MG, BID
  2. DIOVAN [Suspect]
     Dosage: 80 MG AT SUPPER AND 80MG AT BEDTIME
  3. DIOVAN [Suspect]
     Dosage: 40 MG IN THE MORNING
  4. SYNTHROID [Suspect]
     Indication: THYROIDECTOMY
     Dosage: 200 MG
  5. IRON SUPPLEMENTS [Suspect]

REACTIONS (9)
  - DYSPNOEA [None]
  - FATIGUE [None]
  - GAIT DISTURBANCE [None]
  - HYPERTENSION [None]
  - MUSCULOSKELETAL STIFFNESS [None]
  - PARALYSIS [None]
  - RIB FRACTURE [None]
  - THYROIDECTOMY [None]
  - WALKING AID USER [None]
